FAERS Safety Report 9805880 (Version 1)
Quarter: 2014Q1

REPORT INFORMATION
  Report Type: Spontaneous
  Country: US (occurrence: None)
  Receive Date: 20140108
  Receipt Date: 20140108
  Transmission Date: 20141002
  Serious: Yes (Hospitalization)
  Sender: FDA-Public Use
  Company Number: None

PATIENT
  Age: 67 Year
  Sex: Male
  Weight: 118.8 kg

DRUGS (1)
  1. ATORVASTATIN [Suspect]
     Indication: HYPERLIPIDAEMIA
     Route: 048
     Dates: start: 20130303, end: 20130821

REACTIONS (7)
  - Memory impairment [None]
  - Excoriation [None]
  - Local swelling [None]
  - Pain in extremity [None]
  - Syncope [None]
  - Rhabdomyolysis [None]
  - Hypoaesthesia [None]
